FAERS Safety Report 15367995 (Version 3)
Quarter: 2018Q3

REPORT INFORMATION
  Report Type: Spontaneous
  Country: US (occurrence: US)
  Receive Date: 20180910
  Receipt Date: 20180917
  Transmission Date: 20181010
  Serious: Yes (Other)
  Sender: FDA-Public Use
  Company Number: US-SUNOVION-2018SUN003362

PATIENT
  Age: 21 Year
  Sex: Male
  Weight: 88.44 kg

DRUGS (5)
  1. LATUDA [Suspect]
     Active Substance: LURASIDONE HYDROCHLORIDE
     Dosage: 40 UNK, UNK
     Route: 048
  2. LATUDA [Suspect]
     Active Substance: LURASIDONE HYDROCHLORIDE
     Indication: SCHIZOAFFECTIVE DISORDER
     Dosage: 60 MG, QD
     Route: 048
     Dates: start: 201808, end: 201808
  3. FLUVOXAMINE [Concomitant]
     Active Substance: FLUVOXAMINE
     Dosage: UNK, QD
     Route: 048
  4. SERTRALINE [Concomitant]
     Active Substance: SERTRALINE HYDROCHLORIDE
     Dosage: UNK, QD
     Route: 048
  5. OLANZAPINE. [Concomitant]
     Active Substance: OLANZAPINE
     Dosage: UNK, QD
     Route: 048

REACTIONS (11)
  - Aggression [Unknown]
  - Off label use [Unknown]
  - Logorrhoea [Unknown]
  - Paranoia [Unknown]
  - Agitation [Unknown]
  - Abnormal behaviour [Unknown]
  - Psychotic disorder [Unknown]
  - Physical assault [Unknown]
  - Hallucination, auditory [Unknown]
  - Obsessive thoughts [Unknown]
  - Anxiety [Unknown]

NARRATIVE: CASE EVENT DATE: 201808
